FAERS Safety Report 9334844 (Version 7)
Quarter: 2014Q2

REPORT INFORMATION
  Report Type: Spontaneous
  Country: US (occurrence: US)
  Receive Date: 20130606
  Receipt Date: 20140418
  Transmission Date: 20141212
  Serious: Yes (Other)
  Sender: FDA-Public Use
  Company Number: US-AMGEN-USASP2013019572

PATIENT
  Age: 79 Year
  Sex: Female
  Weight: 56.82 kg

DRUGS (18)
  1. PROLIA [Suspect]
     Indication: OSTEOPOROSIS POSTMENOPAUSAL
     Dosage: 60 MG, ONE TIME DOSE
     Route: 058
     Dates: start: 20130312
  2. VITAMINS                           /00067501/ [Concomitant]
  3. PLAQUENIL                          /00072602/ [Concomitant]
     Indication: RHEUMATOID ARTHRITIS
     Dosage: 200 MG, QD
  4. VITAMIN C                          /00008001/ [Concomitant]
  5. GLUCOSAMINE [Concomitant]
  6. VITAMIN D3 [Concomitant]
  7. FISH OIL [Concomitant]
  8. CALCIUM [Concomitant]
  9. NORCO [Concomitant]
  10. MELOXICAM [Concomitant]
     Indication: RADICULOPATHY
     Dosage: 7.9 MG, AS NECESSARY
  11. PENICILLIN                         /00000901/ [Concomitant]
  12. LOVENOX [Concomitant]
     Dosage: UNK
  13. OCUVITE                            /01053801/ [Concomitant]
  14. VITAMIN B [Concomitant]
  15. METHOTREXATE [Concomitant]
  16. FENTANYL [Concomitant]
     Indication: ARTHRALGIA
     Dosage: 50 MUG, UNK
     Route: 042
  17. ENOXAPARIN [Concomitant]
     Indication: THROMBOSIS PROPHYLAXIS
  18. ANCEF                              /00288502/ [Concomitant]

REACTIONS (29)
  - Impaired healing [Not Recovered/Not Resolved]
  - Femur fracture [Not Recovered/Not Resolved]
  - Vision blurred [Not Recovered/Not Resolved]
  - Musculoskeletal stiffness [Unknown]
  - Abdominal distension [Unknown]
  - Alopecia [Not Recovered/Not Resolved]
  - Joint swelling [Not Recovered/Not Resolved]
  - Rash macular [Not Recovered/Not Resolved]
  - Musculoskeletal discomfort [Unknown]
  - Peripheral swelling [Recovering/Resolving]
  - Arthralgia [Not Recovered/Not Resolved]
  - Neuralgia [Not Recovered/Not Resolved]
  - Paraesthesia [Not Recovered/Not Resolved]
  - Hypoaesthesia [Not Recovered/Not Resolved]
  - Cataract [Unknown]
  - Eye disorder [Recovered/Resolved]
  - Stomatitis [Not Recovered/Not Resolved]
  - Oral pain [Unknown]
  - Skin induration [Unknown]
  - Dry skin [Unknown]
  - Skin exfoliation [Unknown]
  - Visual impairment [Not Recovered/Not Resolved]
  - Walking aid user [Not Recovered/Not Resolved]
  - Feeling abnormal [Unknown]
  - Myalgia [Unknown]
  - Back pain [Not Recovered/Not Resolved]
  - Musculoskeletal pain [Unknown]
  - Pain in extremity [Not Recovered/Not Resolved]
  - Erythema [Unknown]
